FAERS Safety Report 25250642 (Version 2)
Quarter: 2025Q2

REPORT INFORMATION
  Report Type: Spontaneous
  Country: TR (occurrence: TR)
  Receive Date: 20250429
  Receipt Date: 20250609
  Transmission Date: 20250717
  Serious: Yes (Other)
  Sender: NOVARTIS
  Company Number: TR-002147023-NVSC2025TR068278

PATIENT
  Age: 53 Year
  Sex: Male

DRUGS (2)
  1. HYDROCHLOROTHIAZIDE\VALSARTAN [Suspect]
     Active Substance: HYDROCHLOROTHIAZIDE\VALSARTAN
     Indication: Hypertension
     Dosage: 1 DOSAGE FORM, QD (STOPPED 1 WEEK AGO)
     Route: 065
  2. HYDROCHLOROTHIAZIDE\VALSARTAN [Suspect]
     Active Substance: HYDROCHLOROTHIAZIDE\VALSARTAN
     Indication: Mitral valve incompetence

REACTIONS (6)
  - Angina pectoris [Unknown]
  - Mitral valve incompetence [Unknown]
  - Disease progression [Unknown]
  - Hypertension [Unknown]
  - Contusion [Unknown]
  - Drug ineffective for unapproved indication [Unknown]
